FAERS Safety Report 8304790-7 (Version None)
Quarter: 2012Q2

REPORT INFORMATION
  Report Type: 
  Country: None (occurrence: None)
  Receive Date: 20120423
  Receipt Date: 20120411
  Transmission Date: 20120825
  Serious: Yes (Hospitalization, Congenital Anomaly)
  Sender: FDA-Public Use
  Company Number: BR-ROCHE-1060207

PATIENT
  Sex: Female

DRUGS (1)
  1. XOLAIR [Suspect]
     Indication: ASTHMA

REACTIONS (10)
  - HEADACHE [None]
  - DYSPNOEA [None]
  - PAIN IN EXTREMITY [None]
  - SOMNOLENCE [None]
  - PERIPHERAL COLDNESS [None]
  - NECK PAIN [None]
  - MALAISE [None]
  - FATIGUE [None]
  - ASTHMA [None]
  - PAIN [None]
